FAERS Safety Report 8309032-4 (Version None)
Quarter: 2012Q2

REPORT INFORMATION
  Report Type: 
  Country: None (occurrence: None)
  Receive Date: 20120424
  Receipt Date: 20120417
  Transmission Date: 20120825
  Serious: Yes (Hospitalization)
  Sender: FDA-Public Use
  Company Number: IT-ELI_LILLY_AND_COMPANY-IT201203006791

PATIENT
  Sex: Male

DRUGS (7)
  1. SAMYR [Concomitant]
     Dosage: 2 DF, UNK
     Route: 048
  2. TAMSULOSIN HYDROCHLORIDE [Concomitant]
     Dosage: 0.4 MG, UNK
  3. SPIRONOLACTONE [Concomitant]
     Dosage: 1 DF, UNK
  4. DEXAMETHASONE SODIUM PHOSPHATE [Concomitant]
     Dosage: 20 DF, UNK
     Route: 048
  5. HUMULIN R [Suspect]
     Indication: HYPERGLYCAEMIA
     Dosage: 2 DF, UNK
     Route: 058
     Dates: start: 20120306, end: 20120306
  6. METFORMIN HCL [Concomitant]
     Indication: DIABETES MELLITUS
     Dosage: 1500 MG, QD
     Route: 048
     Dates: start: 20120131, end: 20120306
  7. TRAMADOL HCL [Concomitant]
     Dosage: 150 MG, UNK
     Route: 048

REACTIONS (5)
  - SOMNOLENCE [None]
  - HYPOGLYCAEMIA [None]
  - HEART SOUNDS ABNORMAL [None]
  - PALLOR [None]
  - UNRESPONSIVE TO STIMULI [None]
